FAERS Safety Report 7441496-0 (Version None)
Quarter: 2011Q2

REPORT INFORMATION
  Report Type: 
  Country: None (occurrence: None)
  Receive Date: 20110418
  Receipt Date: 20110405
  Transmission Date: 20111010
  Serious: Yes (Other)
  Sender: FDA-Public Use
  Company Number: B0713053A

PATIENT
  Sex: 0

DRUGS (2)
  1. MELPHALAN HYDROCHLORIDE [Suspect]
     Indication: MALIGNANT MELANOMA
     Dosage: 10 MG/LITRE /
  2. UNKNOWN (FORMULATION UNKNOWN) (UNKNOWN) [Suspect]
     Indication: MALIGNANT MELANOMA

REACTIONS (4)
  - BRONCHIAL HAEMORRHAGE [None]
  - LOWER RESPIRATORY TRACT INFLAMMATION [None]
  - PULMONARY TOXICITY [None]
  - ACUTE RESPIRATORY DISTRESS SYNDROME [None]
